FAERS Safety Report 22190887 (Version 1)
Quarter: 2023Q2

REPORT INFORMATION
  Report Type: Spontaneous
  Country: FR (occurrence: FR)
  Receive Date: 20230410
  Receipt Date: 20230410
  Transmission Date: 20230722
  Serious: Yes (Other)
  Sender: FDA-Public Use
  Company Number: FR-Accord-307400

PATIENT
  Age: 64 Year
  Sex: Male

DRUGS (4)
  1. CISPLATIN [Suspect]
     Active Substance: CISPLATIN
     Indication: Bladder transitional cell carcinoma
     Dosage: RECEIVED 6 CYCLES
     Dates: start: 2021
  2. METHOTREXATE [Suspect]
     Active Substance: METHOTREXATE
     Indication: Bladder transitional cell carcinoma
     Dosage: RECEIVED 6 CYCLES
     Dates: start: 2021
  3. DOXORUBICIN [Suspect]
     Active Substance: DOXORUBICIN
     Indication: Bladder transitional cell carcinoma
     Dosage: RECEIVED 6 CYCLES
     Dates: start: 2021
  4. VINBLASTINE [Suspect]
     Active Substance: VINBLASTINE
     Indication: Bladder transitional cell carcinoma
     Dosage: RECEIVED 6 CYCLES
     Dates: start: 2021

REACTIONS (6)
  - Gastrointestinal haemorrhage [Recovered/Resolved]
  - Neuropathy peripheral [Unknown]
  - Oesophagitis [Recovered/Resolved]
  - Gastritis [Recovered/Resolved]
  - Asthenia [Recovered/Resolved]
  - Off label use [Unknown]

NARRATIVE: CASE EVENT DATE: 20210101
